FAERS Safety Report 17776203 (Version 2)
Quarter: 2022Q2

REPORT INFORMATION
  Report Type: Report from Study
  Country: US (occurrence: US)
  Receive Date: 20200513
  Receipt Date: 20220617
  Transmission Date: 20220720
  Serious: No
  Sender: FDA-Public Use
  Company Number: US-ACADIA PHARMACEUTICALS INC.-ACA-2019-013177

PATIENT
  Age: 70 Year
  Sex: Female

DRUGS (27)
  1. NUPLAZID [Suspect]
     Active Substance: PIMAVANSERIN TARTRATE
     Indication: Parkinson^s disease psychosis
     Dosage: 34 MG, QD
     Route: 048
     Dates: start: 20190610
  2. NUPLAZID [Suspect]
     Active Substance: PIMAVANSERIN TARTRATE
     Indication: Hallucination
     Dosage: 34 MG, QD
     Route: 048
     Dates: start: 20220523
  3. NUPLAZID [Suspect]
     Active Substance: PIMAVANSERIN TARTRATE
     Indication: Delusion
  4. CLONAZEPAM [Concomitant]
     Active Substance: CLONAZEPAM
     Indication: Product used for unknown indication
  5. ASPIRIN [Concomitant]
     Active Substance: ASPIRIN
  6. BIOTIN [Concomitant]
     Active Substance: BIOTIN
  7. CARBIDOPA\LEVODOPA [Concomitant]
     Active Substance: CARBIDOPA\LEVODOPA
  8. COLACE [Concomitant]
     Active Substance: DOCUSATE SODIUM
  9. FENOFIBRATE [Concomitant]
     Active Substance: FENOFIBRATE
  10. JANUVIA [Concomitant]
     Active Substance: SITAGLIPTIN PHOSPHATE
  11. LANTUS [Concomitant]
     Active Substance: INSULIN GLARGINE
  12. LISINOPRIL [Concomitant]
     Active Substance: LISINOPRIL
  13. MELATONIN [Concomitant]
     Active Substance: MELATONIN
  14. METFORMIN [Concomitant]
     Active Substance: METFORMIN HYDROCHLORIDE
  15. METHIMAZOLE [Concomitant]
     Active Substance: METHIMAZOLE
  16. SCHIFF MOVE FREE [Concomitant]
     Active Substance: DIETARY SUPPLEMENT
  17. PAROXETINE [Concomitant]
     Active Substance: PAROXETINE
  18. PRAVASTATIN [Concomitant]
     Active Substance: PRAVASTATIN
  19. BIFIDOBACTERIUM LONGUM\LACTOBACILLUS ACIDOPHILUS [Concomitant]
     Active Substance: BIFIDOBACTERIUM LONGUM\LACTOBACILLUS ACIDOPHILUS
  20. SEROQUEL [Concomitant]
     Active Substance: QUETIAPINE FUMARATE
  21. HERBALS\TURMERIC [Concomitant]
     Active Substance: HERBALS\TURMERIC
  22. VITAMIN B12 [Concomitant]
     Active Substance: CYANOCOBALAMIN
  23. VITAMIN D3 [Concomitant]
     Active Substance: CHOLECALCIFEROL
  24. DULCOLAX (BISACODYL) [Concomitant]
     Active Substance: BISACODYL
  25. MIRALAX [Concomitant]
     Active Substance: POLYETHYLENE GLYCOL 3350
  26. METAMUCIL [Concomitant]
     Active Substance: PLANTAGO SEED
  27. IPRATROPIUM [Concomitant]
     Active Substance: IPRATROPIUM

REACTIONS (4)
  - Sleep talking [Not Recovered/Not Resolved]
  - Peripheral swelling [Not Recovered/Not Resolved]
  - Hallucination [Not Recovered/Not Resolved]
  - Constipation [Not Recovered/Not Resolved]

NARRATIVE: CASE EVENT DATE: 20190601
